FAERS Safety Report 16499269 (Version 1)
Quarter: 2019Q3

REPORT INFORMATION
  Report Type: Spontaneous
  Country: JP (occurrence: JP)
  Receive Date: 20190701
  Receipt Date: 20190701
  Transmission Date: 20191004
  Serious: Yes (Hospitalization)
  Sender: FDA-Public Use
  Company Number: JP-SUN PHARMACEUTICAL INDUSTRIES LTD-2019R1-212146

PATIENT
  Age: 79 Year
  Sex: Female

DRUGS (2)
  1. CALCITRIOL. [Suspect]
     Active Substance: CALCITRIOL
     Indication: OSTEOPOROSIS
     Dosage: 0.25 MICROGRAM, DAILY
     Route: 048
  2. MAGNESIUM OXIDE. [Suspect]
     Active Substance: MAGNESIUM OXIDE
     Indication: CONSTIPATION
     Dosage: 3 GRAM, DAILY
     Route: 065

REACTIONS (6)
  - Respiratory distress [Unknown]
  - Nephrocalcinosis [Unknown]
  - Hypercalcaemia [Recovering/Resolving]
  - Hypermagnesaemia [Recovering/Resolving]
  - Acute kidney injury [Unknown]
  - Altered state of consciousness [Recovering/Resolving]
